FAERS Safety Report 7516098-8 (Version None)
Quarter: 2011Q2

REPORT INFORMATION
  Report Type: 
  Country: None (occurrence: None)
  Receive Date: 20110601
  Receipt Date: 20110520
  Transmission Date: 20111010
  Serious: Yes (Hospitalization)
  Sender: FDA-Public Use
  Company Number: US-EISAI INC-E3810-04681-CLI-US

PATIENT
  Sex: Female

DRUGS (5)
  1. RABEPRAZOLE SODIUM [Suspect]
     Route: 048
     Dates: start: 20110420
  2. ALBUTEROL SULFATE AUTOHALER [Concomitant]
     Indication: WHEEZING
  3. RABEPRAZOLE SODIUM [Suspect]
     Route: 048
     Dates: start: 20110406, end: 20110419
  4. OMNICEF [Concomitant]
     Indication: RESPIRATORY TRACT INFECTION
     Route: 048
     Dates: start: 20110511, end: 20110513
  5. PREDNISOLONE [Concomitant]
     Indication: WHEEZING
     Route: 048
     Dates: start: 20110509

REACTIONS (5)
  - PYREXIA [None]
  - COUGH [None]
  - PNEUMONIA [None]
  - RHINORRHOEA [None]
  - BRONCHITIS [None]
